FAERS Safety Report 20460135 (Version 4)
Quarter: 2024Q2

REPORT INFORMATION
  Report Type: Spontaneous
  Country: US (occurrence: US)
  Receive Date: 20220211
  Receipt Date: 20240510
  Transmission Date: 20240716
  Serious: Yes (Other)
  Sender: FDA-Public Use
  Company Number: US-JNJFOC-20220211478

PATIENT
  Sex: Female

DRUGS (2)
  1. ELMIRON [Suspect]
     Active Substance: PENTOSAN POLYSULFATE SODIUM
     Indication: Cystitis interstitial
     Dosage: UNSPECIFIED DOSAGE/3 X DAILY
     Route: 048
     Dates: start: 1997, end: 2010
  2. ELMIRON [Suspect]
     Active Substance: PENTOSAN POLYSULFATE SODIUM
     Route: 048
     Dates: end: 2014

REACTIONS (3)
  - Maculopathy [Unknown]
  - Retinal dystrophy [Unknown]
  - Off label use [Unknown]

NARRATIVE: CASE EVENT DATE: 20110101
